FAERS Safety Report 16364256 (Version 3)
Quarter: 2020Q3

REPORT INFORMATION
  Report Type: Spontaneous
  Country: CH (occurrence: CH)
  Receive Date: 20190528
  Receipt Date: 20200911
  Transmission Date: 20201102
  Serious: Yes (Life-Threatening, Hospitalization, Other)
  Sender: FDA-Public Use
  Company Number: CH-GILEAD-2019-0410326

PATIENT
  Age: 41 Year
  Sex: Female

DRUGS (8)
  1. LOPINAVIR + RITONAVIR [Concomitant]
     Active Substance: LOPINAVIR\RITONAVIR
     Dates: start: 20160509, end: 20180207
  2. AZT [Concomitant]
     Active Substance: ZIDOVUDINE
     Dates: start: 2009, end: 201411
  3. DESCOVY [Suspect]
     Active Substance: EMTRICITABINE\TENOFOVIR ALAFENAMIDE FUMARATE
     Indication: PRODUCT USED FOR UNKNOWN INDICATION
     Route: 065
     Dates: start: 201811
  4. LAMIVUDINE. [Concomitant]
     Active Substance: LAMIVUDINE
     Dates: start: 2009, end: 201411
  5. TRUVADA [Concomitant]
     Active Substance: EMTRICITABINE\TENOFOVIR DISOPROXIL FUMARATE
     Dates: start: 20160509, end: 201811
  6. ATRIPLA [Concomitant]
     Active Substance: EFAVIRENZ\EMTRICITABINE\TENOFOVIR DISOPROXIL FUMARATE
     Dates: start: 201411, end: 20160509
  7. NEVIRAPINE. [Concomitant]
     Active Substance: NEVIRAPINE
     Dates: start: 2009, end: 201411
  8. TIVICAY [Suspect]
     Active Substance: DOLUTEGRAVIR SODIUM
     Indication: PRODUCT USED FOR UNKNOWN INDICATION
     Route: 065
     Dates: start: 20180207

REACTIONS (1)
  - Suicidal behaviour [Recovered/Resolved]

NARRATIVE: CASE EVENT DATE: 20190418
